FAERS Safety Report 4539045-X (Version None)
Quarter: 2004Q4

REPORT INFORMATION
  Report Type: 
  Country: None (occurrence: None)
  Receive Date: 20041222
  Receipt Date: 20041215
  Transmission Date: 20050328
  Serious: Yes (Hospitalization)
  Sender: FDA-Public Use
  Company Number: 2004UW25577

PATIENT
  Age: 28 Year

DRUGS (2)
  1. SEROQUEL [Suspect]
     Dosage: 300 MG PO
     Route: 048
  2. LAMICTAL [Suspect]

REACTIONS (4)
  - ACCIDENT [None]
  - CONVULSION [None]
  - INJURY [None]
  - TREATMENT NONCOMPLIANCE [None]
